FAERS Safety Report 9125132 (Version 5)
Quarter: 2013Q4

REPORT INFORMATION
  Report Type: Spontaneous
  Country: US (occurrence: US)
  Receive Date: 20130227
  Receipt Date: 20131206
  Transmission Date: 20140711
  Serious: Yes (Other)
  Sender: FDA-Public Use
  Company Number: US-ROCHE-1195582

PATIENT
  Age: 15 Year
  Sex: Male

DRUGS (10)
  1. XOLAIR [Suspect]
     Indication: ASTHMA
     Route: 058
     Dates: start: 201203, end: 201211
  2. XOLAIR [Suspect]
     Route: 065
     Dates: end: 201212
  3. XOLAIR [Suspect]
     Route: 065
     Dates: end: 201301
  4. XOLAIR [Suspect]
     Route: 065
     Dates: end: 20130204
  5. XOLAIR [Suspect]
     Route: 065
     Dates: start: 20130318
  6. XOLAIR [Suspect]
     Route: 065
  7. XOLAIR [Suspect]
     Route: 058
  8. XOLAIR [Suspect]
     Route: 065
     Dates: start: 201306
  9. LORATADINE [Concomitant]
  10. SALBUTAMOL [Concomitant]

REACTIONS (8)
  - Abscess [Recovered/Resolved]
  - Asthmatic crisis [Recovered/Resolved]
  - Respiratory rate decreased [Recovered/Resolved]
  - Rash [Recovered/Resolved]
  - Papule [Unknown]
  - Wheezing [Unknown]
  - Asthma [Unknown]
  - Abasia [Unknown]
